FAERS Safety Report 25777608 (Version 1)
Quarter: 2025Q3

REPORT INFORMATION
  Report Type: Spontaneous
  Country: US (occurrence: US)
  Receive Date: 20250909
  Receipt Date: 20250909
  Transmission Date: 20251021
  Serious: No
  Sender: EDENBRIDGE PHARMACEUTICALS
  Company Number: US-EDENBRIDGE PHARMACEUTICALS, LLC-US-2025EDE000023

PATIENT
  Sex: Male

DRUGS (1)
  1. COLESTIPOL [Suspect]
     Active Substance: COLESTIPOL
     Indication: Product used for unknown indication
     Route: 065

REACTIONS (2)
  - Foreign body in throat [Unknown]
  - Product contamination physical [Unknown]
